FAERS Safety Report 17870317 (Version 4)
Quarter: 2020Q2

REPORT INFORMATION
  Report Type: Spontaneous
  Country: CA (occurrence: CA)
  Receive Date: 20200608
  Receipt Date: 20200619
  Transmission Date: 20200714
  Serious: Yes (Hospitalization, Other)
  Sender: FDA-Public Use
  Company Number: CA-PFIZER INC-2020221646

PATIENT
  Age: 75 Year
  Sex: Male

DRUGS (60)
  1. GLIBENCLAMIDE [Concomitant]
     Active Substance: GLYBURIDE
     Indication: TYPE 2 DIABETES MELLITUS
     Dosage: 10 MG, BID (ONCE EVERY 12 HOURS)
     Route: 048
     Dates: end: 20180207
  2. INSULIN [Concomitant]
     Active Substance: INSULIN NOS
     Dosage: 6 IU, 1X
     Route: 058
     Dates: start: 20190917, end: 20190917
  3. METOPROLOL. [Concomitant]
     Active Substance: METOPROLOL
     Dosage: 25 MG, BID (ONCE EVERY 12 HOURS)
     Route: 048
     Dates: start: 20180607
  4. VOLTAREN EMULGEL JOINT PAIN EXTRA STRENGTH [Concomitant]
     Active Substance: DICLOFENAC DIETHYLAMINE
     Indication: ARTHRITIS
     Dosage: 1 DF, PRN
     Route: 061
  5. ANCEF [Concomitant]
     Active Substance: CEFAZOLIN SODIUM
     Dosage: 1 G, QD
     Route: 042
     Dates: start: 20180225, end: 20180225
  6. LEVOFLOXACIN. [Concomitant]
     Active Substance: LEVOFLOXACIN
     Dosage: 750 MG, QD
     Route: 048
     Dates: start: 20191211, end: 20191211
  7. ROCEPHIN [Concomitant]
     Active Substance: CEFTRIAXONE SODIUM
     Indication: PNEUMONIA
     Dosage: 2000 MG, QD
     Route: 042
     Dates: start: 20191208, end: 20191211
  8. SOLU-MEDROL [Concomitant]
     Active Substance: METHYLPREDNISOLONE SODIUM SUCCINATE
     Indication: HYPERTENSION
  9. CODEINE [Concomitant]
     Active Substance: CODEINE
     Dosage: 15 MG, PRN
     Route: 048
     Dates: start: 20191211
  10. THIAMINE. [Concomitant]
     Active Substance: THIAMINE
     Indication: VITAMIN B1 DECREASED
     Dosage: 100 MG, QD
     Route: 042
     Dates: start: 20191208, end: 20191210
  11. NYSTATIN. [Concomitant]
     Active Substance: NYSTATIN
     Indication: CANDIDA INFECTION
     Dosage: 40000 IU, QID
     Route: 002
     Dates: start: 20191213
  12. CLOPIDOGREL [Concomitant]
     Active Substance: CLOPIDOGREL BISULFATE
     Indication: CARDIOVASCULAR EVENT PROPHYLAXIS
     Dosage: 300 MG, 1X
     Route: 048
     Dates: start: 20191215, end: 20191215
  13. ASAPHEN [Concomitant]
     Active Substance: ASPIRIN
     Indication: CARDIOVASCULAR EVENT PROPHYLAXIS
     Dosage: 320 MG, 1X
     Route: 048
     Dates: start: 20191205, end: 20191215
  14. AMOXICILLIN+CLAVULANIC ACID [AMOXICILLIN SODIUM;CLAVULANATE POTASSIUM] [Concomitant]
     Dosage: UNK
  15. INSULIN [Concomitant]
     Active Substance: INSULIN NOS
     Indication: TYPE 2 DIABETES MELLITUS
     Dosage: 4 IU, 1X
     Route: 058
     Dates: start: 20190917, end: 20190917
  16. DURICEF [Concomitant]
     Active Substance: CEFADROXIL
     Indication: ULCER
     Dosage: 1 G, BID (ONCE EVERY 12 HOURS)
     Route: 048
     Dates: start: 20180402, end: 20180416
  17. TAZOCIN [Concomitant]
     Active Substance: PIPERACILLIN SODIUM\TAZOBACTAM SODIUM
     Dosage: 2.25 G, 1X
     Route: 042
     Dates: start: 20180522, end: 20180522
  18. CEFAZOLIN [Concomitant]
     Active Substance: CEFAZOLIN
     Indication: INFECTION PROPHYLAXIS
     Dosage: 2 G, QD
     Route: 042
     Dates: start: 20190917, end: 201909
  19. PREDNISONE. [Concomitant]
     Active Substance: PREDNISONE
     Indication: INFLAMMATION
     Dosage: 50 MG, QD
     Route: 048
     Dates: start: 20191210, end: 20191210
  20. FUROSEMIDE. [Concomitant]
     Active Substance: FUROSEMIDE
     Indication: PLEURAL EFFUSION
     Dosage: 20 MG, BID
     Route: 058
     Dates: start: 20191213, end: 20191214
  21. SAXAGLIPTIN [Concomitant]
     Active Substance: SAXAGLIPTIN
     Dosage: 5 MG, QD
     Route: 048
     Dates: start: 20190130, end: 20191208
  22. TAZOCIN [Concomitant]
     Active Substance: PIPERACILLIN SODIUM\TAZOBACTAM SODIUM
     Dosage: 4.5 G, QID
     Route: 042
     Dates: start: 20180523, end: 20180527
  23. CODEINE [Concomitant]
     Active Substance: CODEINE
     Indication: PAIN
     Dosage: 15 MG, PRN
     Route: 058
     Dates: start: 20191208, end: 20191210
  24. MAGNESIUM SULFATE. [Concomitant]
     Active Substance: MAGNESIUM SULFATE
     Indication: BLOOD MAGNESIUM DECREASED
     Dosage: 2 G, 1X
     Route: 042
     Dates: start: 20191208, end: 20191208
  25. CLOPIDOGREL [Concomitant]
     Active Substance: CLOPIDOGREL BISULFATE
     Dosage: 75 MG, QD
     Route: 048
     Dates: start: 20191216, end: 20191218
  26. GLICLAZIDE [Concomitant]
     Active Substance: GLICLAZIDE
     Dosage: 60 MG, QD
     Route: 048
     Dates: start: 20190130
  27. METFORMIN [Concomitant]
     Active Substance: METFORMIN HYDROCHLORIDE
     Indication: TYPE 2 DIABETES MELLITUS
     Dosage: 250 MG, QD
     Route: 048
     Dates: start: 20110414
  28. METOPROLOL. [Concomitant]
     Active Substance: METOPROLOL
     Indication: HYPERTENSION
     Dosage: 100 MG, QD
     Route: 048
     Dates: end: 20180606
  29. ROSUVASTATIN. [Concomitant]
     Active Substance: ROSUVASTATIN
     Indication: DYSLIPIDAEMIA
     Dosage: 40 MG, QD
     Route: 048
  30. LEVOFLOXACIN. [Concomitant]
     Active Substance: LEVOFLOXACIN
     Indication: PNEUMONIA
     Dosage: 750 MG, QD
     Route: 042
     Dates: start: 20191208, end: 20191208
  31. POLYETHYLENE GLYCOL [Concomitant]
     Active Substance: POLYETHYLENE GLYCOLS
     Indication: LAXATIVE SUPPORTIVE CARE
     Dosage: 17 G, QD
     Route: 048
     Dates: start: 20191212
  32. DAPAGLIFLOZIN. [Suspect]
     Active Substance: DAPAGLIFLOZIN
     Indication: CHRONIC KIDNEY DISEASE
     Dosage: 10 MG, QD
     Route: 048
     Dates: start: 20180123, end: 20180125
  33. DAPAGLIFLOZIN. [Suspect]
     Active Substance: DAPAGLIFLOZIN
     Dosage: 10 MG, QD
     Route: 048
     Dates: start: 20180208, end: 20180224
  34. SAXAGLIPTIN [Concomitant]
     Active Substance: SAXAGLIPTIN
     Dosage: 2.5 MG, QD
     Route: 048
     Dates: start: 20180606, end: 20190129
  35. INSULIN [Concomitant]
     Active Substance: INSULIN NOS
     Dosage: 6 IU, PRN
     Route: 058
     Dates: start: 20191209, end: 20191218
  36. LEVOFLOXACIN. [Concomitant]
     Active Substance: LEVOFLOXACIN
     Indication: INFECTION PROPHYLAXIS
     Dosage: 500 MG, QD
     Route: 048
     Dates: start: 20180528, end: 20180601
  37. ACETAMINOPHEN. [Concomitant]
     Active Substance: ACETAMINOPHEN
     Indication: PAIN
     Dosage: 975 MG, PRN
     Route: 048
     Dates: start: 20191209
  38. LOVENOX [Concomitant]
     Active Substance: ENOXAPARIN SODIUM
     Indication: CARDIOVASCULAR EVENT PROPHYLAXIS
     Dosage: 40 MG, QD
     Route: 058
     Dates: start: 20191211, end: 20191217
  39. ASAPHEN [Concomitant]
     Active Substance: ASPIRIN
     Dosage: 80 MG, QD
     Route: 048
     Dates: start: 20191216, end: 20191218
  40. LORAZEPAM. [Concomitant]
     Active Substance: LORAZEPAM
     Indication: ANXIETY
     Dosage: 1 MG, 1X
     Route: 048
     Dates: start: 20191218, end: 20191218
  41. RAMIPRIL. [Suspect]
     Active Substance: RAMIPRIL
     Dosage: 2.5 MG, 1X/DAY
     Route: 048
     Dates: start: 20200504
  42. SAXAGLIPTIN [Concomitant]
     Active Substance: SAXAGLIPTIN
     Indication: TYPE 2 DIABETES MELLITUS
     Dosage: 2.5 MG, QD
     Route: 048
     Dates: end: 20180206
  43. GLICLAZIDE [Concomitant]
     Active Substance: GLICLAZIDE
     Indication: TYPE 2 DIABETES MELLITUS
     Dosage: 80 MG, BID (ONCE ERERY 12 HOURS)
     Route: 048
     Dates: start: 20180527, end: 20190129
  44. ERTAPENEM. [Concomitant]
     Active Substance: ERTAPENEM SODIUM
     Indication: CELLULITIS
     Dosage: 1 G, QD
     Route: 042
     Dates: start: 20180224, end: 20180401
  45. TAZOCIN [Concomitant]
     Active Substance: PIPERACILLIN SODIUM\TAZOBACTAM SODIUM
     Indication: NECROSIS
     Dosage: 2.25 G, 1X
     Route: 042
     Dates: start: 20180522, end: 20180522
  46. TAZOCIN [Concomitant]
     Active Substance: PIPERACILLIN SODIUM\TAZOBACTAM SODIUM
     Dosage: 3375 MG, QID
     Route: 042
     Dates: start: 20191211, end: 20191213
  47. ELIQUIS [Concomitant]
     Active Substance: APIXABAN
     Dosage: 5 MG, QD
     Route: 048
     Dates: start: 20190920, end: 20191218
  48. HYDROMORPHONE [Concomitant]
     Active Substance: HYDROMORPHONE
     Indication: PROCEDURAL PAIN
     Dosage: 1 MG, PRN (1.000 MG 1-2 CO Q4HRS PRN)
     Route: 048
     Dates: start: 20190917, end: 20190917
  49. MOXIFLOXACIN. [Concomitant]
     Active Substance: MOXIFLOXACIN
     Indication: INFECTION PROPHYLAXIS
     Dosage: 400 MG, QD
     Route: 048
     Dates: start: 20190917, end: 20190925
  50. HEPARINE [HEPARIN] [Concomitant]
     Active Substance: HEPARIN SODIUM
     Indication: CARDIOVASCULAR EVENT PROPHYLAXIS
     Dosage: 5000 IU, BID
     Route: 058
     Dates: start: 20191208, end: 20191209
  51. HEPARINE [HEPARIN] [Concomitant]
     Active Substance: HEPARIN SODIUM
     Indication: CARDIOVASCULAR EVENT PROPHYLAXIS
     Dosage: 6600 IU, 1X
     Route: 042
     Dates: start: 20191218, end: 20191218
  52. RAMIPRIL. [Suspect]
     Active Substance: RAMIPRIL
     Indication: CHRONIC KIDNEY DISEASE
     Dosage: 5 MG, 1X/DAY
     Route: 048
     Dates: start: 20190531, end: 20200503
  53. IRBESARTAN. [Concomitant]
     Active Substance: IRBESARTAN
     Indication: CHRONIC KIDNEY DISEASE
     Dosage: 300 MG, QD
     Route: 048
     Dates: end: 20180606
  54. SAXAGLIPTIN [Concomitant]
     Active Substance: SAXAGLIPTIN
     Dosage: 5 MG, QD
     Route: 048
     Dates: start: 20180207, end: 20180605
  55. INSULIN [Concomitant]
     Active Substance: INSULIN NOS
     Indication: TYPE 2 DIABETES MELLITUS
     Dosage: 125 IU, PRN
     Route: 042
     Dates: start: 20191209, end: 20191209
  56. SITAGLIPTIN [Concomitant]
     Active Substance: SITAGLIPTIN
     Indication: TYPE 2 DIABETES MELLITUS
     Dosage: 50 MG, QD
     Route: 048
     Dates: start: 20191214, end: 20191219
  57. ANCEF [Concomitant]
     Active Substance: CEFAZOLIN SODIUM
     Indication: CELLULITIS
     Dosage: 2 G, 1X
     Route: 042
     Dates: start: 20180225, end: 20180225
  58. SOLU-MEDROL [Concomitant]
     Active Substance: METHYLPREDNISOLONE SODIUM SUCCINATE
     Indication: MYALGIA
     Dosage: 40 MG, BID
     Route: 042
     Dates: start: 20191208, end: 20191208
  59. ELIQUIS [Concomitant]
     Active Substance: APIXABAN
     Indication: CARDIOVASCULAR EVENT PROPHYLAXIS
     Dosage: 5 MG, QD
     Route: 048
     Dates: start: 20180208, end: 20180914
  60. XARELTO [Concomitant]
     Active Substance: RIVAROXABAN
     Indication: CARDIOVASCULAR EVENT PROPHYLAXIS
     Dosage: 15 MG, QD
     Route: 048
     Dates: start: 20191218

REACTIONS (11)
  - Anal incontinence [Unknown]
  - Fall [Unknown]
  - Musculoskeletal pain [Unknown]
  - Loss of consciousness [Unknown]
  - Fatigue [Unknown]
  - Hypotension [Recovered/Resolved]
  - Seizure [Unknown]
  - Renal cyst [Unknown]
  - Pleural effusion [Unknown]
  - Syncope [Recovered/Resolved]
  - Haemarthrosis [Unknown]

NARRATIVE: CASE EVENT DATE: 20200502
